FAERS Safety Report 23110273 (Version 1)
Quarter: 2023Q4

REPORT INFORMATION
  Report Type: Spontaneous
  Country: US (occurrence: US)
  Receive Date: 20231026
  Receipt Date: 20231026
  Transmission Date: 20240109
  Serious: Yes (Life-Threatening, Hospitalization, Other)
  Sender: FDA-Public Use
  Company Number: US-MLMSERVICE-20231005-4591553-1

PATIENT

DRUGS (1)
  1. HALOPERIDOL [Suspect]
     Active Substance: HALOPERIDOL
     Indication: Agitation
     Dosage: 5 MILLIGRAM
     Route: 030

REACTIONS (6)
  - Cardiac arrest [Unknown]
  - Disseminated intravascular coagulation [Unknown]
  - Cardiopulmonary failure [Unknown]
  - Cardiac failure congestive [Unknown]
  - Rhabdomyolysis [Unknown]
  - Neuroleptic malignant syndrome [Unknown]
